FAERS Safety Report 4447711-X (Version None)
Quarter: 2004Q3

REPORT INFORMATION
  Report Type: 
  Country: None (occurrence: None)
  Receive Date: 20040802
  Receipt Date: 20040525
  Transmission Date: 20050211
  Serious: No
  Sender: FDA-Public Use
  Company Number: 2004-118229-NL

PATIENT
  Age: 25 Year
  Sex: Female

DRUGS (5)
  1. NUVARING [Suspect]
     Indication: ENDOMETRIOSIS
     Dosage: DF DAILY VAGINAL
     Route: 067
     Dates: start: 20040201
  2. THRYOID [Concomitant]
  3. PROTEIN SHAKES [Concomitant]
  4. WHEAT GRASS [Concomitant]
  5. HERBAL SUPPLEMENTS [Concomitant]

REACTIONS (2)
  - MEDICAL DEVICE CHANGE [None]
  - VAGINAL CONTRACEPTIVE DEVICE EXPELLED [None]
